FAERS Safety Report 4965770-2 (Version None)
Quarter: 2006Q2

REPORT INFORMATION
  Report Type: 
  Country: None (occurrence: None)
  Receive Date: 20060406
  Receipt Date: 20060406
  Transmission Date: 20061013
  Serious: Yes (Disabling, Other)
  Sender: FDA-Public Use
  Company Number: None

PATIENT
  Age: 65 Year
  Sex: Female
  Weight: 72.5755 kg

DRUGS (1)
  1. LAMICTAL [Suspect]
     Dosage: 25 X 3
     Dates: start: 20020901

REACTIONS (3)
  - BONE DISORDER [None]
  - FRACTURE [None]
  - TOOTH LOSS [None]
